FAERS Safety Report 6987069-5 (Version None)
Quarter: 2010Q3

REPORT INFORMATION
  Report Type: 
  Country: None (occurrence: None)
  Receive Date: 20100916
  Receipt Date: 20100902
  Transmission Date: 20110219
  Serious: Yes (Hospitalization)
  Sender: FDA-Public Use
  Company Number: US-ELI_LILLY_AND_COMPANY-US201009002404

PATIENT
  Sex: Female

DRUGS (19)
  1. FORTEO [Suspect]
     Indication: OSTEOPOROSIS
     Dosage: 20 UG, DAILY (1/D)
     Route: 065
  2. ACETAMINOPHEN [Concomitant]
     Dosage: UNK, UNKNOWN
     Route: 065
  3. OXYCODONE [Concomitant]
     Dosage: UNK, UNKNOWN
     Route: 065
  4. BISACODYL [Concomitant]
     Dosage: 5-10 MG, AS NEEDED
     Route: 065
  5. AMBIEN [Concomitant]
     Dosage: UNK, UNKNOWN
     Route: 065
  6. ALBUTEROL [Concomitant]
     Dosage: UNK, UNKNOWN
     Route: 065
  7. XANAX [Concomitant]
     Dosage: 0.25 MG, EVERY 8 HRS
     Route: 065
  8. ASPIRIN [Concomitant]
     Dosage: UNK, UNKNOWN
     Route: 065
  9. LIPITOR [Concomitant]
     Dosage: UNK, UNKNOWN
     Route: 065
  10. BUMEX [Concomitant]
     Dosage: UNK, UNKNOWN
     Route: 065
  11. CALCIUM [Concomitant]
     Dosage: UNK, UNKNOWN
     Route: 065
  12. VITAMIN D [Concomitant]
     Dosage: UNK, UNKNOWN
     Route: 065
  13. COREG [Concomitant]
     Dosage: 3.12 MG, UNKNOWN
     Route: 065
  14. ARICEPT [Concomitant]
     Dosage: UNK, UNKNOWN
     Route: 065
  15. MAGNESIUM OXIDE [Concomitant]
     Dosage: UNK, UNKNOWN
     Route: 065
  16. POTASSIUM [Concomitant]
     Dosage: UNK, UNKNOWN
     Route: 065
  17. FOSAMAX [Concomitant]
     Dosage: UNK, UNKNOWN
     Route: 065
  18. ALOPURINOL [Concomitant]
  19. AMLODIPINE [Concomitant]

REACTIONS (3)
  - ALOPECIA [None]
  - BONE DISORDER [None]
  - HOSPITALISATION [None]
